FAERS Safety Report 17079259 (Version 1)
Quarter: 2019Q4

REPORT INFORMATION
  Report Type: Spontaneous
  Country: US (occurrence: US)
  Receive Date: 20191029
  Receipt Date: 20191029
  Transmission Date: 20200122
  Serious: No
  Sender: FDA-Public Use
  Company Number: None

PATIENT

DRUGS (2)
  1. VITRASE [Suspect]
     Active Substance: HYALURONIDASE, OVINE
  2. AMPHADASE [Suspect]
     Active Substance: HYALURONIDASE

REACTIONS (2)
  - Product dispensing error [None]
  - Intercepted product administration error [None]
